FAERS Safety Report 8432896-0 (Version None)
Quarter: 2012Q2

REPORT INFORMATION
  Report Type: 
  Country: None (occurrence: None)
  Receive Date: 20120613
  Receipt Date: 20120605
  Transmission Date: 20120825
  Serious: Yes (Hospitalization)
  Sender: FDA-Public Use
  Company Number: FI-ROCHE-1058686

PATIENT
  Sex: Male

DRUGS (5)
  1. POTASSIUM CHLORIDE [Concomitant]
     Route: 048
  2. OFTAQUIX [Concomitant]
     Route: 047
     Dates: start: 20120322, end: 20120326
  3. AMITRID MITE [Concomitant]
     Route: 048
  4. SELOPRAL [Concomitant]
     Route: 048
  5. AVASTIN [Suspect]
     Indication: AGE-RELATED MACULAR DEGENERATION
     Dosage: 25 MG/NL.CONCENTRATE FOR SOLUTION FOR INFUSION
     Route: 050
     Dates: start: 20120323, end: 20120323

REACTIONS (2)
  - TRANSMISSION OF AN INFECTIOUS AGENT VIA A MEDICINAL PRODUCT [None]
  - ENDOPHTHALMITIS [None]
